FAERS Safety Report 4555725-4 (Version None)
Quarter: 2005Q1

REPORT INFORMATION
  Report Type: 
  Country: None (occurrence: None)
  Receive Date: 20050112
  Receipt Date: 20040428
  Transmission Date: 20050727
  Serious: Yes (Hospitalization)
  Sender: FDA-Public Use
  Company Number: 200411498GDS

PATIENT
  Age: 56 Year
  Sex: Male

DRUGS (6)
  1. CIPROFLOXACIN [Suspect]
     Dosage: 500 MG, BID, ORAL
     Route: 048
  2. VANCOMYCIN [Suspect]
     Dosage: 850 MG, BID ; 1 G, BID   :  INTRAVENOUS
     Route: 042
  3. LANTUS [Concomitant]
  4. ROSIGLITAZONE [Concomitant]
  5. CLOPIDOGREL [Concomitant]
  6. RAMIPRIL [Concomitant]

REACTIONS (1)
  - RASH ERYTHEMATOUS [None]
